FAERS Safety Report 14591569 (Version 1)
Quarter: 2018Q1

REPORT INFORMATION
  Report Type: Spontaneous
  Country: IT (occurrence: IT)
  Receive Date: 20180302
  Receipt Date: 20180302
  Transmission Date: 20180509
  Serious: Yes (Hospitalization)
  Sender: FDA-Public Use
  Company Number: IT-SA-2018SA044955

PATIENT
  Age: 51 Year
  Sex: Female

DRUGS (5)
  1. PEPTAZOL [Concomitant]
     Active Substance: PANTOPRAZOLE SODIUM
     Route: 065
  2. MULTAQ [Suspect]
     Active Substance: DRONEDARONE
     Indication: ATRIAL FIBRILLATION
     Route: 048
     Dates: start: 20170101, end: 20170405
  3. COUMADIN [Suspect]
     Active Substance: WARFARIN SODIUM
     Indication: ATRIAL FIBRILLATION
     Route: 048
     Dates: start: 20170101, end: 20170405
  4. CORDARONE [Concomitant]
     Active Substance: AMIODARONE HYDROCHLORIDE
  5. LASIX [Concomitant]
     Active Substance: FUROSEMIDE
     Route: 065

REACTIONS (1)
  - Palpitations [Unknown]

NARRATIVE: CASE EVENT DATE: 20170405
